FAERS Safety Report 24462638 (Version 2)
Quarter: 2025Q3

REPORT INFORMATION
  Report Type: Report from Study
  Country: US (occurrence: US)
  Receive Date: 20241018
  Receipt Date: 20250802
  Transmission Date: 20251021
  Serious: Yes (Other)
  Sender: ALEXION PHARMACEUTICALS
  Company Number: US-AstraZeneca-CH-00712163A

PATIENT
  Sex: Female

DRUGS (1)
  1. CALQUENCE [Suspect]
     Active Substance: ACALABRUTINIB
     Indication: Mantle cell lymphoma
     Dosage: 100 MILLIGRAM, BID
     Dates: start: 202405

REACTIONS (6)
  - Gastrointestinal stoma complication [Unknown]
  - Hypotension [Unknown]
  - Atrial fibrillation [Unknown]
  - Fatigue [Unknown]
  - Diarrhoea [Unknown]
  - Intentional dose omission [Unknown]
